FAERS Safety Report 25543012 (Version 6)
Quarter: 2025Q3

REPORT INFORMATION
  Report Type: Spontaneous
  Country: GB (occurrence: GB)
  Receive Date: 20250711
  Receipt Date: 20250908
  Transmission Date: 20251020
  Serious: Yes (Hospitalization, Other)
  Sender: MYLAN
  Company Number: GB-MYLANLABS-2025M1056906

PATIENT
  Sex: Female

DRUGS (1)
  1. CLOZARIL [Suspect]
     Active Substance: CLOZAPINE
     Indication: Schizophrenia
     Dates: start: 20230522, end: 20250718

REACTIONS (10)
  - COVID-19 [Unknown]
  - Malaise [Recovering/Resolving]
  - Renal failure [Recovering/Resolving]
  - Pneumonia [Unknown]
  - Neutropenia [Not Recovered/Not Resolved]
  - Leukopenia [Not Recovered/Not Resolved]
  - Thrombocytosis [Recovered/Resolved]
  - Eosinophil count decreased [Recovered/Resolved]
  - Anaemia [Not Recovered/Not Resolved]
  - Fatigue [Recovering/Resolving]

NARRATIVE: CASE EVENT DATE: 20250708
